FAERS Safety Report 6249084-9 (Version None)
Quarter: 2009Q2

REPORT INFORMATION
  Report Type: 
  Country: None (occurrence: None)
  Receive Date: 20090629
  Receipt Date: 20090616
  Transmission Date: 20091009
  Serious: Yes (Other)
  Sender: FDA-Public Use
  Company Number: FI-ELI_LILLY_AND_COMPANY-FI200906003566

PATIENT
  Age: 10 Year
  Sex: Male

DRUGS (3)
  1. STRATTERA [Suspect]
     Indication: ATTENTION DEFICIT/HYPERACTIVITY DISORDER
     Dosage: 18 MG, DAILY (1/D)
     Route: 048
     Dates: start: 20071201, end: 20080101
  2. STRATTERA [Suspect]
     Dosage: 40 MG, DAILY (1/D)
     Route: 048
     Dates: start: 20080101, end: 20090101
  3. ZYPREXA [Suspect]
     Route: 048
     Dates: start: 20090101, end: 20090101

REACTIONS (5)
  - DRUG INEFFECTIVE [None]
  - HALLUCINATION, AUDITORY [None]
  - HALLUCINATION, VISUAL [None]
  - SUICIDAL IDEATION [None]
  - WEIGHT INCREASED [None]
